FAERS Safety Report 17355146 (Version 1)
Quarter: 2020Q1

REPORT INFORMATION
  Report Type: Spontaneous
  Country: LV (occurrence: LV)
  Receive Date: 20200131
  Receipt Date: 20200131
  Transmission Date: 20200409
  Serious: Yes (Hospitalization, Other)
  Sender: FDA-Public Use
  Company Number: LV-VIIV HEALTHCARE LIMITED-LV2020EME013639

PATIENT

DRUGS (5)
  1. ATAZANAVIR. [Suspect]
     Active Substance: ATAZANAVIR
     Indication: HIV INFECTION
     Dosage: UNK
     Dates: start: 2015
  2. PREZCOBIX [Suspect]
     Active Substance: COBICISTAT\DARUNAVIR ETHANOLATE
     Indication: HIV INFECTION
     Dosage: UNK
  3. RITONAVIR. [Suspect]
     Active Substance: RITONAVIR
     Indication: HIV INFECTION
     Dosage: UNK
  4. EPZICOM [Suspect]
     Active Substance: ABACAVIR SULFATE\LAMIVUDINE
     Indication: HIV INFECTION
     Dosage: 150 MG
  5. TRUVADA [Suspect]
     Active Substance: EMTRICITABINE\TENOFOVIR DISOPROXIL FUMARATE
     Indication: HIV INFECTION
     Dosage: UNK

REACTIONS (23)
  - Overdose [Unknown]
  - Glomerular filtration rate decreased [Unknown]
  - Toxicity to various agents [Unknown]
  - Portal hypertension [Unknown]
  - Hypocoagulable state [Unknown]
  - Hydrothorax [Unknown]
  - Ascites [Unknown]
  - Dependence [Unknown]
  - Treatment noncompliance [Unknown]
  - HIV infection WHO clinical stage III [Unknown]
  - Hepatic cirrhosis [Unknown]
  - Pancytopenia [Unknown]
  - Hepatocellular injury [Unknown]
  - Leg amputation [Unknown]
  - Haemorrhage [Unknown]
  - Staphylococcal infection [Unknown]
  - Asthenia [Unknown]
  - Hypersplenism [Unknown]
  - Chronic kidney disease [Unknown]
  - Organic brain syndrome [Unknown]
  - Splenomegaly [Unknown]
  - Sepsis [Unknown]
  - Acute kidney injury [Unknown]

NARRATIVE: CASE EVENT DATE: 2016
